FAERS Safety Report 5989926-5 (Version None)
Quarter: 2008Q4

REPORT INFORMATION
  Report Type: 
  Country: None (occurrence: None)
  Receive Date: 20081210
  Receipt Date: 20081113
  Transmission Date: 20090506
  Serious: Yes (Other)
  Sender: FDA-Public Use
  Company Number: 6046582

PATIENT
  Age: 59 Year
  Sex: Female

DRUGS (4)
  1. LEVOTHYROXINE (LEVOTHYROINE) [Suspect]
     Indication: HYPOTHYROIDISM
     Dosage: 150 MC 225 MCG 250 MCG 225 MCG 200 MCG
  2. IMATINIB MESYLATE [Suspect]
     Indication: CHRONIC MYELOID LEUKAEMIA
     Dosage: 800 MCG 400 MCG
  3. ALLOPURINOL [Concomitant]
  4. FUROSEMIDE [Concomitant]

REACTIONS (10)
  - ALOPECIA [None]
  - ASTHENIA [None]
  - CHRONIC MYELOID LEUKAEMIA [None]
  - DRUG INTERACTION [None]
  - DRY SKIN [None]
  - FACE OEDEMA [None]
  - HYPOTHYROIDISM [None]
  - OEDEMA PERIPHERAL [None]
  - PRURITUS [None]
  - WEIGHT INCREASED [None]
